FAERS Safety Report 14833664 (Version 1)
Quarter: 2018Q2

REPORT INFORMATION
  Report Type: Spontaneous
  Country: US (occurrence: US)
  Receive Date: 20180501
  Receipt Date: 20180501
  Transmission Date: 20180711
  Serious: No
  Sender: FDA-Public Use
  Company Number: US-ROCHE-1924008

PATIENT
  Sex: Male

DRUGS (1)
  1. AVASTIN [Suspect]
     Active Substance: BEVACIZUMAB
     Indication: METASTATIC RENAL CELL CARCINOMA
     Dosage: DOSAGE UNKNOWN ;ONGOING: YES
     Route: 042
     Dates: start: 201703

REACTIONS (3)
  - Eye disorder [Not Recovered/Not Resolved]
  - Fear [Not Recovered/Not Resolved]
  - Visual impairment [Not Recovered/Not Resolved]
